FAERS Safety Report 7846006-1 (Version None)
Quarter: 2011Q4

REPORT INFORMATION
  Report Type: 
  Country: None (occurrence: None)
  Receive Date: 20111025
  Receipt Date: 20111020
  Transmission Date: 20120403
  Serious: Yes (Hospitalization)
  Sender: FDA-Public Use
  Company Number: US-VERTEX PHARMACEUTICALS INC.-AE-2011-001777

PATIENT
  Age: 68 Year
  Sex: Female

DRUGS (6)
  1. INCIVEK [Suspect]
     Indication: HEPATITIS C
     Route: 048
     Dates: start: 20110627, end: 20110808
  2. REBETOL [Concomitant]
     Indication: HEPATITIS C
     Route: 048
     Dates: start: 20110727, end: 20110808
  3. PEGASYS [Concomitant]
     Indication: HEPATITIS C
     Route: 058
     Dates: start: 20110620, end: 20110808
  4. ALDACTONE [Concomitant]
  5. HYDROCHLOROTHIAZIDE [Concomitant]
  6. BUTAMIDE [Concomitant]

REACTIONS (4)
  - ANAEMIA [None]
  - HOSPITALISATION [None]
  - ASTHENIA [None]
  - OEDEMA [None]
